FAERS Safety Report 4708826-1 (Version None)
Quarter: 2005Q3

REPORT INFORMATION
  Report Type: 
  Country: None (occurrence: None)
  Receive Date: 20050705
  Receipt Date: 20050620
  Transmission Date: 20060218
  Serious: Yes (Hospitalization)
  Sender: FDA-Public Use
  Company Number: 215477

PATIENT
  Age: 56 Year
  Sex: Male

DRUGS (3)
  1. EFALIZUMAB          (EFALIZUMAB) [Suspect]
     Indication: PSORIASIS
     Dosage: 1 MG/KG, SUBCUTANEOUS
     Route: 058
     Dates: start: 20050511
  2. HYDROCHLOROTHIAZIDE/IRBESARTAN (IRBESARTAN, HYDROCHLOROTHIAZIDE) [Concomitant]
  3. HYDROCHLOROTHIAZIDE [Concomitant]

REACTIONS (1)
  - PHOTOSENSITIVITY REACTION [None]
